FAERS Safety Report 24587416 (Version 1)
Quarter: 2024Q4

REPORT INFORMATION
  Report Type: Spontaneous
  Country: IN (occurrence: IN)
  Receive Date: 20241107
  Receipt Date: 20241107
  Transmission Date: 20250115
  Serious: Yes (Hospitalization, Congenital Anomaly, Other)
  Sender: GLAXOSMITHKLINE
  Company Number: IN-GSK-IN2024GSK133671

PATIENT

DRUGS (2)
  1. LAMOTRIGINE [Suspect]
     Active Substance: LAMOTRIGINE
     Indication: Seizure
     Dosage: UNK
  2. OXCARBAZEPINE [Suspect]
     Active Substance: OXCARBAZEPINE
     Indication: Seizure
     Dosage: UNK

REACTIONS (7)
  - Epilepsy [Recovered/Resolved]
  - Ill-defined disorder [Recovered/Resolved]
  - Cortical dysplasia [Recovered/Resolved]
  - Mobility decreased [Recovered/Resolved]
  - Muscular weakness [Recovered/Resolved]
  - Drug resistance [Unknown]
  - Drug ineffective [Unknown]
